FAERS Safety Report 17692235 (Version 3)
Quarter: 2020Q3

REPORT INFORMATION
  Report Type: Spontaneous
  Country: US (occurrence: US)
  Receive Date: 20200422
  Receipt Date: 20200702
  Transmission Date: 20201102
  Serious: No
  Sender: FDA-Public Use
  Company Number: US-PFIZER INC-2020156972

PATIENT
  Age: 63 Year
  Sex: Female
  Weight: 72.56 kg

DRUGS (1)
  1. PREMARIN [Suspect]
     Active Substance: ESTROGENS, CONJUGATED
     Dosage: 0.5 MG, 1?2 TIMES A WEEK (QUANTITY FOR 90 DAYS ? 3 TUBES)
     Dates: start: 2019

REACTIONS (2)
  - Memory impairment [Unknown]
  - Product prescribing issue [Unknown]
